FAERS Safety Report 4309002-7 (Version None)
Quarter: 2004Q1

REPORT INFORMATION
  Report Type: 
  Country: None (occurrence: None)
  Receive Date: 20040227
  Receipt Date: 20040218
  Transmission Date: 20041129
  Serious: Yes (Hospitalization)
  Sender: FDA-Public Use
  Company Number: 2004200269GB

PATIENT
  Sex: Female

DRUGS (4)
  1. DOXORUBICIN HCL [Suspect]
     Indication: CARCINOMA
     Dosage: 37 MG, CYCLIC
  2. BLEOMYCIN [Concomitant]
  3. VINBLASTINE [Concomitant]
  4. DACARBAZINE [Concomitant]

REACTIONS (2)
  - CARDIAC DISORDER [None]
  - ELECTROCARDIOGRAM CHANGE [None]
